FAERS Safety Report 15838228 (Version 2)
Quarter: 2019Q2

REPORT INFORMATION
  Report Type: Report from Study
  Country: CA (occurrence: CA)
  Receive Date: 20190117
  Receipt Date: 20190410
  Transmission Date: 20190711
  Serious: Yes (Other)
  Sender: FDA-Public Use
  Company Number: CA-JNJFOC-20181134748

PATIENT
  Age: 25 Year
  Sex: Female
  Weight: 71.67 kg

DRUGS (1)
  1. SIMPONI [Suspect]
     Active Substance: GOLIMUMAB
     Indication: ANKYLOSING SPONDYLITIS
     Dosage: THERAPY DURATION: 2 DOSES
     Route: 058
     Dates: start: 20181123

REACTIONS (8)
  - Nausea [Recovered/Resolved]
  - Dizziness [Recovered/Resolved]
  - Viral infection [Unknown]
  - Injection site erythema [Recovered/Resolved]
  - Abdominal discomfort [Recovered/Resolved]
  - Hypersensitivity [Unknown]
  - Injection site pruritus [Recovered/Resolved]
  - Injection site swelling [Recovered/Resolved]

NARRATIVE: CASE EVENT DATE: 20181123
